FAERS Safety Report 6973271-5 (Version None)
Quarter: 2010Q3

REPORT INFORMATION
  Report Type: 
  Country: None (occurrence: None)
  Receive Date: 20100907
  Receipt Date: 20100826
  Transmission Date: 20110219
  Serious: Yes (Hospitalization, Other)
  Sender: FDA-Public Use
  Company Number: 2010SP046565

PATIENT
  Age: 55 Year
  Sex: Female

DRUGS (2)
  1. PEG-INTRON [Suspect]
     Indication: HEPATITIS C
     Dates: start: 20100528, end: 20100812
  2. RIBAVIRIN [Suspect]
     Indication: HEPATITIS C
     Dates: start: 20100528, end: 20100812

REACTIONS (8)
  - ALOPECIA [None]
  - COLITIS [None]
  - LOWER GASTROINTESTINAL HAEMORRHAGE [None]
  - PRURITUS [None]
  - PYREXIA [None]
  - RASH GENERALISED [None]
  - WEIGHT DECREASED [None]
  - WHITE BLOOD CELL COUNT DECREASED [None]
